FAERS Safety Report 25318921 (Version 1)
Quarter: 2025Q2

REPORT INFORMATION
  Report Type: Report from Study
  Country: US (occurrence: US)
  Receive Date: 20250515
  Receipt Date: 20250515
  Transmission Date: 20250716
  Serious: Yes (Death, Hospitalization, Other)
  Sender: UCB
  Company Number: US-UCBSA-2025016107

PATIENT
  Sex: Female

DRUGS (1)
  1. LACOSAMIDE [Suspect]
     Active Substance: LACOSAMIDE
     Indication: Seizure
     Dosage: 200 MILLIGRAM, 1 TABLET, 2X/DAY (BID)
     Dates: end: 20250118

REACTIONS (2)
  - Pneumonia [Fatal]
  - Heart valve incompetence [Fatal]
